FAERS Safety Report 5009111-3 (Version None)
Quarter: 2006Q2

REPORT INFORMATION
  Report Type: 
  Country: None (occurrence: None)
  Receive Date: 20060519
  Receipt Date: 20060426
  Transmission Date: 20061013
  Serious: Yes (Death, Hospitalization)
  Sender: FDA-Public Use
  Company Number: 2006-04-1899

PATIENT
  Sex: Male

DRUGS (6)
  1. POLARAMINE [Suspect]
     Dosage: 5 MG/CYCLE INTRAVENOUS
     Route: 042
     Dates: start: 20051102, end: 20060223
  2. DETICENE [Suspect]
     Indication: HODGKIN'S DISEASE
     Dosage: 710 MG/CYCLE INTRAVENOUS
     Route: 042
     Dates: start: 20051102, end: 20060223
  3. METHYLPREDNISOLONE SODIUM SUCCINATE [Suspect]
     Indication: HODGKIN'S DISEASE
     Dosage: 237 MG/CYCLE INTRAVENOUS
     Route: 042
     Dates: start: 20051102
  4. VELBE [Suspect]
     Indication: HODGKIN'S DISEASE
     Dosage: 11 MG/CYCLE INTRAVENOUS
     Route: 042
     Dates: start: 20051102, end: 20060223
  5. DOXORUBICIN HCL [Suspect]
     Indication: HODGKIN'S DISEASE
     Dosage: 48 MG/CYCLE INTRAVENOUS
     Route: 042
     Dates: start: 20051102, end: 20060223
  6. BLEOMYCIN [Suspect]
     Indication: HODGKIN'S DISEASE
     Dosage: 19 MG/CYCLE INTRAVENOUS
     Route: 042
     Dates: start: 20051102, end: 20060223

REACTIONS (9)
  - CREATININE RENAL CLEARANCE DECREASED [None]
  - DISEASE PROGRESSION [None]
  - DYSPNOEA [None]
  - HYPOXIA [None]
  - INTERSTITIAL LUNG DISEASE [None]
  - LUNG DISORDER [None]
  - PULMONARY FIBROSIS [None]
  - PYREXIA [None]
  - RESPIRATORY DISORDER [None]
